FAERS Safety Report 19913506 (Version 1)
Quarter: 2021Q4

REPORT INFORMATION
  Report Type: Report from Study
  Country: None (occurrence: MX)
  Receive Date: 20211004
  Receipt Date: 20211004
  Transmission Date: 20220303
  Serious: Yes (Death, Hospitalization)
  Sender: FDA-Public Use
  Company Number: MX-ABBVIE-21K-107-4104630-00

PATIENT
  Age: 66 Year
  Sex: Male
  Weight: 177 kg

DRUGS (1)
  1. HUMIRA [Suspect]
     Active Substance: ADALIMUMAB
     Indication: Psoriatic arthropathy
     Route: 058
     Dates: start: 20160530

REACTIONS (3)
  - COVID-19 pneumonia [Fatal]
  - Diabetes mellitus [Fatal]
  - Psoriasis [Unknown]

NARRATIVE: CASE EVENT DATE: 20210801
